FAERS Safety Report 5674178-6 (Version None)
Quarter: 2008Q1

REPORT INFORMATION
  Report Type: 
  Country: None (occurrence: None)
  Receive Date: 20080320
  Receipt Date: 20080313
  Transmission Date: 20080703
  Serious: Yes (Other)
  Sender: FDA-Public Use
  Company Number: JP-BRISTOL-MYERS SQUIBB COMPANY-14096648

PATIENT
  Age: 45 Year
  Sex: Male
  Weight: 47 kg

DRUGS (4)
  1. ABILIFY [Suspect]
     Indication: SCHIZOPHRENIA
     Dosage: 04-31OCT07(8MGQD);01-14NOV07(4MGTID);15-21NOV07(8MGTID);22-25DEC07(10MGTID);26DEC07-20FEB08(10MGQD)
     Route: 048
     Dates: start: 20071004, end: 20080220
  2. LEVOTOMIN [Concomitant]
  3. BIPERIDEN HYDROCHLORIDE TAB [Concomitant]
  4. RISPERDAL [Concomitant]
     Dates: start: 20070222

REACTIONS (3)
  - DELUSION [None]
  - OEDEMA [None]
  - PSYCHOMOTOR HYPERACTIVITY [None]
